FAERS Safety Report 11411699 (Version 3)
Quarter: 2016Q3

REPORT INFORMATION
  Report Type: Spontaneous
  Country: US (occurrence: US)
  Receive Date: 20150821
  Receipt Date: 20160727
  Transmission Date: 20161109
  Serious: No
  Sender: FDA-Public Use
  Company Number: US-ELI_LILLY_AND_COMPANY-US201111003693

PATIENT
  Sex: Female

DRUGS (8)
  1. HUMULIN R [Suspect]
     Active Substance: INSULIN HUMAN
     Indication: TYPE 2 DIABETES MELLITUS
     Dosage: 20 U, PRN
     Route: 065
     Dates: start: 2006
  2. HUMULIN 70/30 [Suspect]
     Active Substance: INSULIN HUMAN
     Dosage: 50 U, EACH LUNCH
     Route: 065
     Dates: start: 201604
  3. HUMULIN R [Suspect]
     Active Substance: INSULIN HUMAN
     Dosage: 40 U, PRN
     Route: 065
     Dates: start: 2006
  4. HUMALOG MIX75/25 [Suspect]
     Active Substance: INSULIN LISPRO
     Indication: TYPE 2 DIABETES MELLITUS
     Dosage: UNK UNK, UNKNOWN
     Route: 065
     Dates: start: 201601, end: 201604
  5. HUMULIN 70/30 [Suspect]
     Active Substance: INSULIN HUMAN
     Dosage: 42 U, EACH EVENING
     Route: 065
     Dates: start: 201604
  6. HUMALOG MIX75/25 [Suspect]
     Active Substance: INSULIN LISPRO
     Dosage: UNK UNK, UNKNOWN
     Route: 065
     Dates: start: 201601, end: 201604
  7. HUMULIN R [Suspect]
     Active Substance: INSULIN HUMAN
     Dosage: 60 U, PRN
     Dates: start: 2006
  8. HUMULIN 70/30 [Suspect]
     Active Substance: INSULIN HUMAN
     Indication: TYPE 2 DIABETES MELLITUS
     Dosage: 92 U, EACH MORNING
     Route: 065
     Dates: start: 201604

REACTIONS (5)
  - Dry skin [Unknown]
  - Rash [Recovered/Resolved]
  - Visual acuity reduced [Unknown]
  - Blood glucose increased [Unknown]
  - Intercepted drug dispensing error [Unknown]
